FAERS Safety Report 23182789 (Version 1)
Quarter: 2023Q4

REPORT INFORMATION
  Report Type: Spontaneous
  Country: US (occurrence: None)
  Receive Date: 20231114
  Receipt Date: 20231114
  Transmission Date: 20240110
  Serious: Yes (Other)
  Sender: FDA-Public Use
  Company Number: None

PATIENT
  Age: 47 Year
  Sex: Female
  Weight: 63 kg

DRUGS (14)
  1. CETIRIZINE HYDROCHLORIDE (ALLERGY) [Suspect]
     Active Substance: CETIRIZINE HYDROCHLORIDE
     Indication: Seasonal allergy
     Dosage: OTHER QUANTITY : 365 TABLET(S);?FREQUENCY : DAILY;?
     Route: 048
     Dates: start: 20210317, end: 20231111
  2. CETIRIZINE HYDROCHLORIDE (ALLERGY) [Suspect]
     Active Substance: CETIRIZINE HYDROCHLORIDE
     Indication: Mycotic allergy
  3. CETIRIZINE HYDROCHLORIDE (ALLERGY) [Suspect]
     Active Substance: CETIRIZINE HYDROCHLORIDE
     Indication: Dust allergy
  4. TRYPTOPHAN [Concomitant]
     Active Substance: TRYPTOPHAN
  5. gaba calm [Concomitant]
  6. pharma gaba [Concomitant]
  7. OMEPRAZOLE [Concomitant]
     Active Substance: OMEPRAZOLE
  8. VITAMIN C [Concomitant]
     Active Substance: ASCORBIC ACID
  9. VITAMIN D3 [Concomitant]
     Active Substance: CHOLECALCIFEROL
  10. FISH OIL [Concomitant]
     Active Substance: FISH OIL
  11. thorne advanced nutrients [Concomitant]
  12. thorne methyl-guard plus [Concomitant]
  13. thorne adrenal cortex [Concomitant]
  14. NAPROXEN SODIUM [Concomitant]
     Active Substance: NAPROXEN SODIUM

REACTIONS (3)
  - Pruritus [None]
  - Headache [None]
  - Urticaria [None]

NARRATIVE: CASE EVENT DATE: 20231112
